FAERS Safety Report 11099704 (Version 1)
Quarter: 2015Q2

REPORT INFORMATION
  Report Type: Spontaneous
  Country: BR (occurrence: BR)
  Receive Date: 20150508
  Receipt Date: 20150508
  Transmission Date: 20150821
  Serious: Yes (Hospitalization, Other)
  Sender: FDA-Public Use
  Company Number: BR-JNJFOC-20150500614

PATIENT
  Age: 64 Year
  Sex: Male

DRUGS (4)
  1. IMURAN [Concomitant]
     Active Substance: AZATHIOPRINE
     Route: 065
     Dates: start: 2014, end: 201412
  2. REMICADE [Suspect]
     Active Substance: INFLIXIMAB
     Indication: CROHN^S DISEASE
     Route: 042
     Dates: end: 201310
  3. REMICADE [Suspect]
     Active Substance: INFLIXIMAB
     Indication: CROHN^S DISEASE
     Route: 042
     Dates: start: 201407
  4. REMICADE [Suspect]
     Active Substance: INFLIXIMAB
     Indication: CROHN^S DISEASE
     Route: 042
     Dates: start: 20150305

REACTIONS (14)
  - Visual impairment [Unknown]
  - Type 2 diabetes mellitus [Unknown]
  - Cellulitis [Unknown]
  - Limb injury [Unknown]
  - Toxoplasmosis [Unknown]
  - Diarrhoea [Unknown]
  - Limb injury [Unknown]
  - Gastrointestinal disorder [Unknown]
  - Joint injury [Unknown]
  - Kidney infection [Unknown]
  - Pneumonia [Unknown]
  - Decreased immune responsiveness [Unknown]
  - Wound [Unknown]
  - Fall [Unknown]

NARRATIVE: CASE EVENT DATE: 2013
